FAERS Safety Report 7821920-1 (Version None)
Quarter: 2011Q4

REPORT INFORMATION
  Report Type: 
  Country: None (occurrence: None)
  Receive Date: 20111018
  Receipt Date: 20110422
  Transmission Date: 20120403
  Serious: No
  Sender: FDA-Public Use
  Company Number: US-ASTRAZENECA-2011SE23534

PATIENT
  Age: 40 Year
  Sex: Female
  Weight: 61.2 kg

DRUGS (1)
  1. SYMBICORT [Suspect]
     Indication: ASTHMA
     Dosage: 2 PUFFS BID
     Route: 055
     Dates: start: 20100701, end: 20101001

REACTIONS (3)
  - TONGUE DISCOLOURATION [None]
  - TONGUE DRY [None]
  - GLOSSODYNIA [None]
